FAERS Safety Report 5257627-7 (Version None)
Quarter: 2007Q1

REPORT INFORMATION
  Report Type: 
  Country: None (occurrence: None)
  Receive Date: 20070307
  Receipt Date: 20070110
  Transmission Date: 20070707
  Serious: No
  Sender: FDA-Public Use
  Company Number: US-GLAXOSMITHKLINE-A0635234A

PATIENT
  Sex: Male

DRUGS (3)
  1. REQUIP [Suspect]
     Indication: RESTLESS LEGS SYNDROME
     Dosage: .25MG AT NIGHT
     Route: 048
     Dates: start: 20070108
  2. OXYGEN [Concomitant]
     Route: 055
  3. EPIPEN [Concomitant]

REACTIONS (7)
  - DECREASED APPETITE [None]
  - DRUG HYPERSENSITIVITY [None]
  - INSOMNIA [None]
  - MUSCLE TIGHTNESS [None]
  - NAUSEA [None]
  - PAIN [None]
  - RESTLESSNESS [None]
